FAERS Safety Report 22075551 (Version 1)
Quarter: 2023Q1

REPORT INFORMATION
  Report Type: Report from Study
  Country: CO (occurrence: CO)
  Receive Date: 20230308
  Receipt Date: 20230308
  Transmission Date: 20230418
  Serious: Yes (Life-Threatening, Other)
  Sender: FDA-Public Use
  Company Number: CO-ALLERGAN-2307444US

PATIENT
  Sex: Female
  Weight: 77 kg

DRUGS (4)
  1. BOTULINUM TOXIN TYPE A [Suspect]
     Active Substance: BOTULINUM TOXIN TYPE A
     Indication: Facial spasm
     Dosage: 200 UNITS, SINGLE
     Route: 030
     Dates: start: 20191001, end: 20191001
  2. IRBESARTAN [Concomitant]
     Active Substance: IRBESARTAN
     Indication: Hypertension
     Dosage: UNK,1 PER DAY
     Route: 048
  3. CARVEDILOL [Concomitant]
     Active Substance: CARVEDILOL
     Indication: Hypertension
     Dosage: 1 PER DAY
     Route: 048
  4. VENLAFAXINE [Concomitant]
     Active Substance: VENLAFAXINE HYDROCHLORIDE
     Indication: Product used for unknown indication
     Dosage: UNKNOWN, AT MORNING AND AT NIGHT

REACTIONS (6)
  - Rectal cancer [Not Recovered/Not Resolved]
  - Metastasis [Not Recovered/Not Resolved]
  - Altered state of consciousness [Not Recovered/Not Resolved]
  - Neoplasm malignant [Unknown]
  - Abdominal pain [Not Recovered/Not Resolved]
  - Speech disorder [Not Recovered/Not Resolved]

NARRATIVE: CASE EVENT DATE: 20190101
